FAERS Safety Report 4838109-0 (Version None)
Quarter: 2005Q4

REPORT INFORMATION
  Report Type: 
  Country: None (occurrence: None)
  Receive Date: 20051128
  Receipt Date: 20051118
  Transmission Date: 20060501
  Serious: Yes (Hospitalization, Other)
  Sender: FDA-Public Use
  Company Number: US-JNJFOC-20050802504

PATIENT
  Sex: Male

DRUGS (2)
  1. DURAGESIC-100 [Suspect]
     Route: 062
  2. MS CONTIN [Concomitant]
     Indication: PAIN
     Route: 048

REACTIONS (5)
  - ASCITES [None]
  - DECUBITUS ULCER [None]
  - DIABETES MELLITUS [None]
  - LIVER DISORDER [None]
  - PNEUMONIA [None]
